FAERS Safety Report 8137342-2 (Version None)
Quarter: 2012Q1

REPORT INFORMATION
  Report Type: 
  Country: None (occurrence: None)
  Receive Date: 20120210
  Receipt Date: 20120130
  Transmission Date: 20120608
  Serious: Yes (Other)
  Sender: FDA-Public Use
  Company Number: FK201200284

PATIENT
  Age: 15 Year
  Sex: Female
  Weight: 52.4 kg

DRUGS (16)
  1. URSODEOXYCHOLIC ACID (URSODEOXYCHOLIC ACID) (URSODEOXYCHOLIC ACID) [Concomitant]
  2. MEROPENEM [Suspect]
     Indication: CYSTIC FIBROSIS
     Dosage: INTRAVENOUS (NOT OTHERWISE SPECIFIED)
     Route: 042
     Dates: start: 20111207, end: 20111227
  3. TOBRAMYCIN [Suspect]
     Indication: CYSTIC FIBROSIS
     Dosage: INTRAVENOUS (NOT OTHERWISE SPECIFIED)
     Route: 042
     Dates: start: 20111207, end: 20111227
  4. DEOXYRIBONUCLEASE (DORNASE ALFA) (DORNASE ALFA) [Concomitant]
  5. VITAMIN A (RETINOL) (RETINOL) [Concomitant]
  6. VITAMIN E (TOCOPHEROL) (TOCOPHEROL) [Concomitant]
  7. OMEPRAZOL (OMEPRAZOLE) (OMEPRAZOLE) [Concomitant]
  8. MULTIVITAMINE (VIGRAN) [Concomitant]
  9. VITAMIN K (PHYTOMENADIONE) (PHYTOMENADIONE) [Concomitant]
  10. CREON (PANCREATIN) (PANCREATIN) [Concomitant]
  11. MENADIOL (MENADIOL) (MENADIOL) [Concomitant]
  12. SENOKOT (SENNA ALEXANDRINA) (SENNA ALEXANDRINA) [Concomitant]
  13. NULYTELY [Concomitant]
  14. ALBUTEROL [Concomitant]
  15. VITAMIN B SUBSTANCES (THIAMINE HYDROCHLORIDE) (THIAMINE HYDROCHLORIDE) [Concomitant]
  16. VITAMIN C (ASCORBIC ACID) (ASCORBIC ACID) [Concomitant]

REACTIONS (2)
  - AGEUSIA [None]
  - DECREASED APPETITE [None]
